FAERS Safety Report 7784449-5 (Version None)
Quarter: 2011Q3

REPORT INFORMATION
  Report Type: 
  Country: None (occurrence: None)
  Receive Date: 20110928
  Receipt Date: 20110909
  Transmission Date: 20111222
  Serious: Yes (Other)
  Sender: FDA-Public Use
  Company Number: US-PURDUE-USA-2010-0048602

PATIENT
  Sex: Female

DRUGS (3)
  1. LEXAPRO [Suspect]
     Indication: DEPRESSION
     Dosage: 10 MG, UNK
     Route: 048
     Dates: start: 20110603, end: 20110613
  2. ZOLOFT [Suspect]
     Indication: DEPRESSION
     Dosage: 100 MG, UNK
     Route: 048
     Dates: start: 20110613, end: 20110720
  3. OXYCONTIN [Suspect]
     Indication: PAIN
     Dosage: 80 MG, Q8H

REACTIONS (3)
  - ENERGY INCREASED [None]
  - INADEQUATE ANALGESIA [None]
  - BIPOLAR I DISORDER [None]
